FAERS Safety Report 7842948-1 (Version None)
Quarter: 2011Q4

REPORT INFORMATION
  Report Type: 
  Country: None (occurrence: None)
  Receive Date: 20111025
  Receipt Date: 20110706
  Transmission Date: 20120403
  Serious: Yes (Other)
  Sender: FDA-Public Use
  Company Number: IE-ELI_LILLY_AND_COMPANY-IE201107001717

PATIENT
  Age: 65 Year
  Sex: Female

DRUGS (2)
  1. CYMBALTA [Suspect]
     Indication: DEPRESSION
     Dosage: 30 MG, QD
     Dates: start: 20110507
  2. CYMBALTA [Suspect]
     Dosage: 60 MG, QD
     Dates: start: 20110609

REACTIONS (2)
  - STEVENS-JOHNSON SYNDROME [None]
  - RASH MACULO-PAPULAR [None]
